FAERS Safety Report 7646951-6 (Version None)
Quarter: 2011Q3

REPORT INFORMATION
  Report Type: 
  Country: None (occurrence: None)
  Receive Date: 20110801
  Receipt Date: 20110722
  Transmission Date: 20111222
  Serious: Yes (Hospitalization, Other)
  Sender: FDA-Public Use
  Company Number: US-BAYER-2010-002747

PATIENT
  Sex: Female
  Weight: 122.45 kg

DRUGS (4)
  1. YAZ [Suspect]
     Indication: PRODUCT USED FOR UNKNOWN INDICATION
     Dosage: UNK
     Dates: start: 19990101, end: 20010101
  2. PITOCIN [Concomitant]
     Dosage: UNK
     Dates: start: 20080103
  3. CERVIDIL [Concomitant]
     Dosage: UNK
     Dates: start: 20080102
  4. YASMIN [Suspect]
     Indication: PRODUCT USED FOR UNKNOWN INDICATION
     Dosage: UNK
     Dates: start: 19990101, end: 20010101

REACTIONS (4)
  - THROMBOSIS [None]
  - BILIARY COLIC [None]
  - GALLBLADDER INJURY [None]
  - PULMONARY EMBOLISM [None]
